FAERS Safety Report 11629418 (Version 1)
Quarter: 2015Q4

REPORT INFORMATION
  Report Type: Spontaneous
  Country: US (occurrence: None)
  Receive Date: 20151013
  Receipt Date: 20151013
  Transmission Date: 20160304
  Serious: Yes (Life-Threatening, Disabling, Other)
  Sender: FDA-Public Use
  Company Number: None

PATIENT
  Age: 32 Year
  Sex: Female
  Weight: 90.72 kg

DRUGS (6)
  1. BUPROPIN [Concomitant]
  2. METHYLPHENIDATE 40 MG MALLINCKRODT [Suspect]
     Active Substance: METHYLPHENIDATE
     Indication: ATTENTION DEFICIT/HYPERACTIVITY DISORDER
     Dosage: TAKEN BY MOUTH
     Dates: start: 20151001, end: 20151011
  3. OXYCODIN [Concomitant]
  4. CONCERTA [Concomitant]
     Active Substance: METHYLPHENIDATE HYDROCHLORIDE
  5. DULOXETINE 30 MG LUPIN [Suspect]
     Active Substance: DULOXETINE
     Indication: OBSESSIVE-COMPULSIVE DISORDER
     Dosage: TAKEN BY MOUTH  (PILLS)
     Dates: start: 20150210
  6. DULOXETINE. [Concomitant]
     Active Substance: DULOXETINE

REACTIONS (7)
  - Product substitution issue [None]
  - Fall [None]
  - Head injury [None]
  - Depression [None]
  - Anxiety [None]
  - Vertigo [None]
  - Dizziness [None]

NARRATIVE: CASE EVENT DATE: 20151009
